FAERS Safety Report 17204645 (Version 5)
Quarter: 2020Q1

REPORT INFORMATION
  Report Type: Report from Study
  Country: CA (occurrence: CA)
  Receive Date: 20191226
  Receipt Date: 20200128
  Transmission Date: 20200409
  Serious: Yes (Other)
  Sender: FDA-Public Use
  Company Number: CA-BEH-2019110938

PATIENT
  Age: 41 Year
  Sex: Female

DRUGS (17)
  1. BERINERT [Suspect]
     Active Substance: HUMAN C1-ESTERASE INHIBITOR
     Indication: HEREDITARY ANGIOEDEMA WITH C1 ESTERASE INHIBITOR DEFICIENCY
     Dosage: 4500 INTERNATIONAL UNIT, BIW
     Route: 058
     Dates: start: 2019
  2. ADALAT [Concomitant]
     Active Substance: NIFEDIPINE
  3. WELLBUTRIN [Concomitant]
     Active Substance: BUPROPION HYDROCHLORIDE
  4. FIRAZYR [Concomitant]
     Active Substance: ICATIBANT ACETATE
     Indication: HEREDITARY ANGIOEDEMA
     Dosage: UNK, PRN
  5. BERINERT [Suspect]
     Active Substance: HUMAN C1-ESTERASE INHIBITOR
     Indication: HEREDITARY ANGIOEDEMA WITH C1 ESTERASE INHIBITOR DEFICIENCY
     Dosage: 4500 INTERNATIONAL UNIT, BIW
     Route: 058
     Dates: start: 2019
  6. BERINERT [Suspect]
     Active Substance: HUMAN C1-ESTERASE INHIBITOR
     Indication: PROPHYLAXIS
     Dosage: 4500 INTERNATIONAL UNIT, TOT
     Route: 042
     Dates: start: 20191218, end: 20191218
  7. BERINERT [Suspect]
     Active Substance: HUMAN C1-ESTERASE INHIBITOR
     Indication: PROPHYLAXIS
     Dosage: 4500 INTERNATIONAL UNIT, TOT
     Route: 042
     Dates: start: 20191218, end: 20191218
  8. BERINERT [Suspect]
     Active Substance: HUMAN C1-ESTERASE INHIBITOR
     Dosage: UNK
     Route: 058
  9. CLONAZEPAM. [Concomitant]
     Active Substance: CLONAZEPAM
     Dosage: UNK, PRN
     Route: 065
  10. BERINERT [Suspect]
     Active Substance: HUMAN C1-ESTERASE INHIBITOR
     Dosage: 4500 INTERNATIONAL UNIT, BIW
     Route: 042
     Dates: start: 2009
  11. BERINERT [Suspect]
     Active Substance: HUMAN C1-ESTERASE INHIBITOR
     Dosage: UNK
     Route: 058
  12. BERINERT [Suspect]
     Active Substance: HUMAN C1-ESTERASE INHIBITOR
     Dosage: 4500 INTERNATIONAL UNIT, TOT
     Route: 058
     Dates: start: 20191218, end: 20191218
  13. BERINERT [Suspect]
     Active Substance: HUMAN C1-ESTERASE INHIBITOR
     Dosage: 4500 INTERNATIONAL UNIT, TOT
     Route: 058
     Dates: start: 20191218, end: 20191218
  14. ZYPREXA [Concomitant]
     Active Substance: OLANZAPINE
  15. BERINERT [Suspect]
     Active Substance: HUMAN C1-ESTERASE INHIBITOR
     Dosage: 4500 INTERNATIONAL UNIT, BIW
     Route: 042
     Dates: start: 2009
  16. BERINERT [Suspect]
     Active Substance: HUMAN C1-ESTERASE INHIBITOR
     Dosage: UNK
     Route: 058
  17. BERINERT [Suspect]
     Active Substance: HUMAN C1-ESTERASE INHIBITOR
     Dosage: UNK
     Route: 058

REACTIONS (13)
  - Device related infection [Not Recovered/Not Resolved]
  - Hereditary angioedema [Unknown]
  - Hereditary angioedema [Not Recovered/Not Resolved]
  - No adverse event [Unknown]
  - Eye swelling [Recovered/Resolved]
  - Hereditary angioedema [Recovered/Resolved]
  - Gastroenteritis viral [Not Recovered/Not Resolved]
  - Off label use [Unknown]
  - Hereditary angioedema [Not Recovered/Not Resolved]
  - Hereditary angioedema [Not Recovered/Not Resolved]
  - Lip swelling [Recovered/Resolved]
  - Intentional product use issue [Unknown]
  - Hereditary angioedema [Not Recovered/Not Resolved]

NARRATIVE: CASE EVENT DATE: 201911
